FAERS Safety Report 5905069-0 (Version None)
Quarter: 2008Q3

REPORT INFORMATION
  Report Type: 
  Country: None (occurrence: None)
  Receive Date: 20080909
  Receipt Date: 20080623
  Transmission Date: 20090109
  Serious: Yes (Disabling, Other)
  Sender: FDA-Public Use
  Company Number: 163-20785-08051099

PATIENT
  Age: 83 Year
  Sex: Male

DRUGS (4)
  1. THALOMID [Suspect]
     Indication: MULTIPLE MYELOMA
     Dosage: 50 MG, 1 IN 1 D, ORAL ; 100 MG, 2 IN 1 D, ORAL ; 50 MG 1 IN 1 D, ORAL
     Route: 048
     Dates: start: 20080324, end: 20080401
  2. THALOMID [Suspect]
     Indication: MULTIPLE MYELOMA
     Dosage: 50 MG, 1 IN 1 D, ORAL ; 100 MG, 2 IN 1 D, ORAL ; 50 MG 1 IN 1 D, ORAL
     Route: 048
     Dates: start: 20080415, end: 20080501
  3. THALOMID [Suspect]
     Indication: MULTIPLE MYELOMA
     Dosage: 50 MG, 1 IN 1 D, ORAL ; 100 MG, 2 IN 1 D, ORAL ; 50 MG 1 IN 1 D, ORAL
     Route: 048
     Dates: start: 20080521
  4. THALOMID [Suspect]

REACTIONS (9)
  - ABASIA [None]
  - ANOREXIA [None]
  - ASTHENIA [None]
  - CONFUSIONAL STATE [None]
  - CONSTIPATION [None]
  - FATIGUE [None]
  - HEART RATE IRREGULAR [None]
  - ORAL CANDIDIASIS [None]
  - RASH [None]
